FAERS Safety Report 17261897 (Version 1)
Quarter: 2020Q1

REPORT INFORMATION
  Report Type: Spontaneous
  Country: US (occurrence: US)
  Receive Date: 20200110
  Receipt Date: 20200110
  Transmission Date: 20200409
  Serious: No
  Sender: FDA-Public Use
  Company Number: None

PATIENT
  Age: 69 Year
  Sex: Female
  Weight: 81 kg

DRUGS (6)
  1. SINENMET 25-100MG [Concomitant]
  2. SYNTHROID 125MG [Concomitant]
  3. SEMVESTATIN 40MG [Concomitant]
  4. VITAMIN D3 5000IU [Concomitant]
  5. SELEGILINE [Suspect]
     Active Substance: SELEGILINE
     Indication: PRODUCT USED FOR UNKNOWN INDICATION
     Dosage: ?          QUANTITY:1 TABLET(S);?
     Route: 048
     Dates: start: 20191020, end: 20200105
  6. MULTIVITAMIN [Concomitant]
     Active Substance: VITAMINS

REACTIONS (3)
  - Gait inability [None]
  - Pain [None]
  - Serotonin syndrome [None]

NARRATIVE: CASE EVENT DATE: 20200107
